FAERS Safety Report 4362556-7 (Version None)
Quarter: 2004Q2

REPORT INFORMATION
  Report Type: 
  Country: None (occurrence: None)
  Receive Date: 20040517
  Receipt Date: 20040217
  Transmission Date: 20050107
  Serious: Yes (Hospitalization)
  Sender: FDA-Public Use
  Company Number: S04-USA-00715-01

PATIENT
  Age: 79 Year
  Sex: Female

DRUGS (6)
  1. NAMENDA [Suspect]
     Indication: DEMENTIA ALZHEIMER'S TYPE
     Dosage: 5 MG QD PO
     Route: 048
  2. XANAX [Concomitant]
  3. PAXIL [Concomitant]
  4. HYZAAR [Concomitant]
  5. NORTRIPTYLINE HCL [Concomitant]
  6. ZOCOR [Concomitant]

REACTIONS (1)
  - SYNCOPE [None]
